FAERS Safety Report 4517513-4 (Version None)
Quarter: 2004Q4

REPORT INFORMATION
  Report Type: 
  Country: None (occurrence: None)
  Receive Date: 20041130
  Receipt Date: 20041117
  Transmission Date: 20050328
  Serious: Yes (Hospitalization)
  Sender: FDA-Public Use
  Company Number: 2004UW23754

PATIENT
  Age: 77 Year
  Sex: Female
  Weight: 67.2 kg

DRUGS (3)
  1. ARIMIDEX [Suspect]
     Indication: BREAST CANCER
     Dosage: 1 MG DAILY PO
     Route: 048
  2. COUMADIN [Concomitant]
  3. NORVASC [Concomitant]

REACTIONS (2)
  - COLITIS ISCHAEMIC [None]
  - CONDITION AGGRAVATED [None]
